FAERS Safety Report 7238352-X (Version None)
Quarter: 2011Q1

REPORT INFORMATION
  Report Type: 
  Country: None (occurrence: None)
  Receive Date: 20110121
  Receipt Date: 20110117
  Transmission Date: 20110831
  Serious: Yes (Other)
  Sender: FDA-Public Use
  Company Number: DE-BRISTOL-MYERS SQUIBB COMPANY-15499197

PATIENT
  Age: 29 Year
  Sex: Male

DRUGS (3)
  1. BLEOMYCIN SULFATE [Suspect]
     Indication: TESTIS CANCER
     Dosage: SECOND CYCLE A TOTAL DOSE OF BLEOMYCIN SULFATE 90MG
  2. CISPLATIN [Suspect]
     Indication: TESTIS CANCER
  3. ETOPOSIDE [Suspect]
     Indication: TESTIS CANCER

REACTIONS (1)
  - DERMATITIS [None]
